FAERS Safety Report 9855211 (Version 2)
Quarter: 2014Q2

REPORT INFORMATION
  Report Type: Spontaneous
  Country: US (occurrence: US)
  Receive Date: 20140130
  Receipt Date: 20140415
  Transmission Date: 20141212
  Serious: Yes (Life-Threatening, Hospitalization, Other)
  Sender: FDA-Public Use
  Company Number: US-BAYER-2014-013308

PATIENT
  Age: 39 Year
  Sex: Female

DRUGS (1)
  1. MIRENA [Suspect]
     Indication: CONTRACEPTION
     Dosage: 20 MCG/24HR, CONT
     Route: 015
     Dates: start: 20060808, end: 20120323

REACTIONS (11)
  - Injury [None]
  - Pregnancy with contraceptive device [None]
  - Drug ineffective [None]
  - Device dislocation [None]
  - Haemorrhage in pregnancy [None]
  - Abdominal pain lower [None]
  - General physical health deterioration [None]
  - Anxiety [None]
  - Anhedonia [None]
  - Pain [None]
  - Emotional distress [None]
